FAERS Safety Report 10053252 (Version 2)
Quarter: 2014Q2

REPORT INFORMATION
  Report Type: Spontaneous
  Country: US (occurrence: US)
  Receive Date: 20140402
  Receipt Date: 20140402
  Transmission Date: 20141212
  Serious: Yes (Other)
  Sender: FDA-Public Use
  Company Number: US-LUNDBECK-DKLU1094865

PATIENT
  Age: 25 Year
  Sex: Female
  Weight: 46 kg

DRUGS (16)
  1. SABRIL     (TABLET) [Suspect]
     Indication: EPILEPSY
     Dates: start: 201201
  2. SABRIL     (TABLET) [Suspect]
     Indication: COMPLEX PARTIAL SEIZURES
     Dates: start: 201201
  3. SABRIL     (TABLET) [Suspect]
  4. SABRIL     (TABLET) [Suspect]
  5. SABRIL     (TABLET) [Suspect]
  6. SABRIL     (TABLET) [Suspect]
  7. SABRIL     (TABLET) [Suspect]
  8. MELATONIN [Concomitant]
     Indication: PRODUCT USED FOR UNKNOWN INDICATION
  9. TAURINE [Concomitant]
     Indication: SUPPLEMENTATION THERAPY
  10. FELBATOL [Concomitant]
     Indication: CONVULSION
  11. FELBATOL [Concomitant]
  12. FELBATOL [Concomitant]
     Dates: end: 20120920
  13. FELBATOL [Concomitant]
     Dates: start: 20120920
  14. FELBATOL [Concomitant]
  15. VALIUM [Concomitant]
     Indication: COMPLEX PARTIAL SEIZURES
  16. VALIUM [Concomitant]
     Indication: AURA

REACTIONS (8)
  - Generalised tonic-clonic seizure [Unknown]
  - Hemiparesis [Unknown]
  - Physical assault [Unknown]
  - Psychotic disorder [Unknown]
  - Drug intolerance [Unknown]
  - Agitation [Unknown]
  - Somnolence [Unknown]
  - Sedation [Unknown]
